FAERS Safety Report 16703525 (Version 4)
Quarter: 2019Q3

REPORT INFORMATION
  Report Type: Spontaneous
  Country: AT (occurrence: AT)
  Receive Date: 20190814
  Receipt Date: 20190925
  Transmission Date: 20191004
  Serious: Yes (Death, Life-Threatening, Hospitalization, Other)
  Sender: FDA-Public Use
  Company Number: PHHY2019AT188412

PATIENT
  Age: 65 Year
  Sex: Male

DRUGS (6)
  1. ABRAXANE [Suspect]
     Active Substance: PACLITAXEL
     Dosage: 200 MG, UNK (200 MILLIGRAM)
     Route: 065
     Dates: start: 20190627, end: 20190802
  2. CARBOPLATIN. [Suspect]
     Active Substance: CARBOPLATIN
     Indication: NON-SMALL CELL LUNG CANCER
     Dosage: 330 MG, UNK
     Route: 065
  3. ABRAXANE [Suspect]
     Active Substance: PACLITAXEL
     Indication: NON-SMALL CELL LUNG CANCER
     Dosage: 200 MG, UNK
     Route: 065
  4. KEYTRUDA [Suspect]
     Active Substance: PEMBROLIZUMAB
     Indication: NON-SMALL CELL LUNG CANCER
     Dosage: 180 MG, UNK (2 TIMES)
     Route: 065
     Dates: start: 20190627, end: 20190802
  5. CARBOPLATIN. [Suspect]
     Active Substance: CARBOPLATIN
     Dosage: 330 MG, UNK
     Route: 065
     Dates: start: 20190627, end: 20190802
  6. PEMETREXED DISODIUM [Suspect]
     Active Substance: PEMETREXED DISODIUM
     Indication: PRODUCT USED FOR UNKNOWN INDICATION
     Dosage: UNK
     Route: 065

REACTIONS (7)
  - Chapped lips [Unknown]
  - Toxic epidermal necrolysis [Unknown]
  - Lip disorder [Unknown]
  - Rash [Unknown]
  - Death [Fatal]
  - Adverse event [Unknown]
  - Epidermolysis [Unknown]

NARRATIVE: CASE EVENT DATE: 2019
